FAERS Safety Report 24009351 (Version 2)
Quarter: 2024Q3

REPORT INFORMATION
  Report Type: Spontaneous
  Country: US (occurrence: US)
  Receive Date: 20240625
  Receipt Date: 20240701
  Transmission Date: 20241017
  Serious: No
  Sender: AMGEN
  Company Number: US-AMGEN-USASP2024122371

PATIENT
  Age: 66 Year
  Sex: Female

DRUGS (1)
  1. BLINCYTO [Suspect]
     Active Substance: BLINATUMOMAB
     Indication: Acute lymphocytic leukaemia
     Dosage: 28 MICROGRAM, QD 7 DAY (35 MCG VIAL)
     Route: 065

REACTIONS (2)
  - Infusion site haemorrhage [Unknown]
  - Product administration error [Unknown]

NARRATIVE: CASE EVENT DATE: 20240618
